FAERS Safety Report 24184349 (Version 1)
Quarter: 2024Q3

REPORT INFORMATION
  Report Type: Spontaneous
  Country: US (occurrence: None)
  Receive Date: 20240807
  Receipt Date: 20240807
  Transmission Date: 20241016
  Serious: No
  Sender: Public
  Company Number: None

PATIENT
  Age: 75 Year
  Sex: Female
  Weight: 39.46 kg

DRUGS (1)
  1. GAMUNEX-C [Suspect]
     Active Substance: HUMAN IMMUNOGLOBULIN G
     Indication: Polymyositis
     Dosage: INFUSE 40 GRAMS PER DAY X2D  THEN REPEAT COURSE EVERY4 WEEKS AS DIRECTED.?
     Route: 011
     Dates: start: 202401

REACTIONS (2)
  - Rib fracture [None]
  - Therapy interrupted [None]
